FAERS Safety Report 25847596 (Version 2)
Quarter: 2025Q4

REPORT INFORMATION
  Report Type: Spontaneous
  Country: JP (occurrence: JP)
  Receive Date: 20250925
  Receipt Date: 20251030
  Transmission Date: 20260117
  Serious: Yes (Other)
  Sender: GUERBET
  Company Number: JP-GUERBETG_JAPAN-JP-20250154

PATIENT
  Age: 44 Year
  Sex: Female

DRUGS (2)
  1. LIPIODOL [Suspect]
     Active Substance: ETHIODIZED OIL
     Indication: Therapeutic embolisation
     Dosage: 1:4 RATIO OF MIXTURE OF NBCA AND LIPIODOL
     Route: 013
  2. ENBUCRILATE [Suspect]
     Active Substance: ENBUCRILATE
     Indication: Therapeutic embolisation
     Dosage: 1:4 RATIO OF MIXTURE OF NBCA AND LIPIODOL
     Route: 013

REACTIONS (2)
  - Renal infarct [Unknown]
  - Renal impairment [Unknown]
